FAERS Safety Report 5314489-7 (Version None)
Quarter: 2007Q2

REPORT INFORMATION
  Report Type: 
  Country: None (occurrence: None)
  Receive Date: 20070430
  Receipt Date: 20070430
  Transmission Date: 20071010
  Serious: No
  Sender: FDA-Public Use
  Company Number: None

PATIENT
  Age: 42 Year
  Sex: Female
  Weight: 70.7611 kg

DRUGS (2)
  1. ZICAM COLD REMEDY ZICAM [Suspect]
     Indication: HYPERSENSITIVITY
     Dosage: 1 IN EACH NOSE 1 TIME EACH DAY
     Dates: start: 20030101, end: 20051201
  2. ZICAM COLD REMEDY ZICAM [Suspect]
     Indication: NASOPHARYNGITIS
     Dosage: 1 IN EACH NOSE 1 TIME EACH DAY
     Dates: start: 20030101, end: 20051201

REACTIONS (2)
  - AGEUSIA [None]
  - ANOSMIA [None]
